FAERS Safety Report 4820070-6 (Version None)
Quarter: 2005Q4

REPORT INFORMATION
  Report Type: 
  Country: None (occurrence: None)
  Receive Date: 20051103
  Receipt Date: 20051025
  Transmission Date: 20060501
  Serious: Yes (Hospitalization)
  Sender: FDA-Public Use
  Company Number: US-ABBOTT-05P-163-0315089-00

PATIENT
  Sex: Female
  Weight: 46.762 kg

DRUGS (3)
  1. HUMIRA 40 MG/ 0.8 ML PRE-FILLED SYRINGE [Suspect]
     Indication: RHEUMATOID ARTHRITIS
     Route: 058
     Dates: start: 20040101
  2. DARVOCET [Concomitant]
     Indication: PAIN
     Route: 048
  3. DARVOCET [Concomitant]
     Indication: RHEUMATOID ARTHRITIS

REACTIONS (8)
  - EMPHYSEMA [None]
  - FALL [None]
  - FEMUR FRACTURE [None]
  - HIP FRACTURE [None]
  - INCISION SITE COMPLICATION [None]
  - PNEUMATOSIS [None]
  - RHEUMATOID ARTHRITIS [None]
  - RIB FRACTURE [None]
